FAERS Safety Report 7360980-1 (Version None)
Quarter: 2011Q1

REPORT INFORMATION
  Report Type: 
  Country: None (occurrence: None)
  Receive Date: 20110318
  Receipt Date: 20110107
  Transmission Date: 20110831
  Serious: No
  Sender: FDA-Public Use
  Company Number: US-BAYER-2011-003117

PATIENT
  Sex: Female
  Weight: 59 kg

DRUGS (3)
  1. ALEVE (CAPLET) [Suspect]
     Indication: ANALGESIC THERAPY
     Dosage: DAILY
     Route: 048
     Dates: start: 20110107
  2. ISOSORBIDE DINITRATE [Concomitant]
  3. DILTIAZEM [Concomitant]

REACTIONS (1)
  - HYPOAESTHESIA [None]
